FAERS Safety Report 8402671-1 (Version None)
Quarter: 2012Q2

REPORT INFORMATION
  Report Type: 
  Country: None (occurrence: None)
  Receive Date: 20120601
  Receipt Date: 20120526
  Transmission Date: 20120825
  Serious: Yes (Death)
  Sender: FDA-Public Use
  Company Number: MX-ROCHE-1072696

PATIENT
  Sex: Female
  Weight: 68 kg

DRUGS (2)
  1. HERCEPTIN [Suspect]
     Indication: BREAST CANCER
     Dosage: LAST DOSE TAKEN: 408 MG
     Route: 042
     Dates: start: 20111021
  2. DOCETAXEL [Suspect]
     Indication: BREAST CANCER
     Dosage: DATE OF LAST DOSE PRIOR TO EVENT: 08/MAY/2012, LAST DOSE TAKEN: 120 MG
     Route: 042
     Dates: start: 20111021

REACTIONS (1)
  - DEATH [None]
